FAERS Safety Report 7943278-X (Version None)
Quarter: 2011Q4

REPORT INFORMATION
  Report Type: 
  Country: None (occurrence: None)
  Receive Date: 20111128
  Receipt Date: 20111118
  Transmission Date: 20120403
  Serious: Yes (Hospitalization)
  Sender: FDA-Public Use
  Company Number: DK-B.I. PHARMACEUTICALS,INC./RIDGEFIELD-2010-SW-00234DB

PATIENT
  Sex: Male
  Weight: 110 kg

DRUGS (9)
  1. PRADAXA [Suspect]
     Indication: THROMBOSIS PROPHYLAXIS
     Dosage: 220 MG
     Route: 048
     Dates: end: 20100715
  2. ASPIRIN [Concomitant]
     Indication: ANTICOAGULANT THERAPY
     Dosage: 75 MG
     Route: 048
     Dates: end: 20100715
  3. IMOCLONE [Concomitant]
     Indication: SLEEP DISORDER
     Dosage: 7.5 MG
     Route: 048
  4. TRANDOLAPRIL [Concomitant]
     Indication: CARDIAC DISORDER
     Dosage: 4 MG
     Route: 048
  5. SPIRONOLACTONE [Concomitant]
     Indication: DIURETIC THERAPY
     Dosage: STRENTGH: 12.5 MG, DOSAGE TEXT 25 MG
     Route: 048
  6. SIMVASTATIN [Concomitant]
     Indication: HYPERCHOLESTEROLAEMIA
     Dosage: 40 MG
     Route: 048
  7. FUROSEMIDE [Concomitant]
     Indication: DIURETIC THERAPY
     Dosage: 80 MG
     Route: 048
  8. METOPROLOL SUCCINATE [Concomitant]
     Indication: ATRIAL FIBRILLATION
     Dosage: FORM: PROLONGED RELEASE TABLETS, DOSAGE TEXT: 50 MILLIGRAMS(S)
     Route: 048
  9. SPIRIVA [Concomitant]
     Indication: CHRONIC OBSTRUCTIVE PULMONARY DISEASE
     Dosage: 18 MCG
     Route: 055

REACTIONS (2)
  - RECTAL HAEMORRHAGE [None]
  - BLOOD CREATININE INCREASED [None]
